FAERS Safety Report 8973709 (Version 1)
Quarter: 2012Q4

REPORT INFORMATION
  Report Type: 
  Country: CN (occurrence: CN)
  Receive Date: 20121218
  Receipt Date: 20121218
  Transmission Date: 20130627
  Serious: Yes (Hospitalization)
  Sender: FDA-Public Use
  Company Number: PHHY2012CN109551

PATIENT
  Age: 35 None
  Sex: Female
  Weight: 51 kg

DRUGS (1)
  1. CARBAMAZEPINE [Suspect]
     Indication: NERVOUS SYSTEM DISORDER
     Dosage: 0.1 g, BID
     Route: 048
     Dates: start: 20110201, end: 20110421

REACTIONS (17)
  - Epidermolysis [Recovering/Resolving]
  - Rash maculo-papular [Recovering/Resolving]
  - Rash [Recovered/Resolved]
  - Generalised oedema [Recovering/Resolving]
  - Blister [Recovering/Resolving]
  - Erythema [Recovering/Resolving]
  - Nikolsky^s sign [Recovering/Resolving]
  - Papule [Recovering/Resolving]
  - Conjunctival hyperaemia [Recovering/Resolving]
  - Lacrimation increased [Recovering/Resolving]
  - Mucosal erosion [Recovered/Resolved]
  - Rash papular [Recovering/Resolving]
  - Malaise [Recovering/Resolving]
  - Rash vesicular [Recovering/Resolving]
  - Pruritus [Recovering/Resolving]
  - Skin exfoliation [Recovering/Resolving]
  - Roseola [Recovering/Resolving]
